FAERS Safety Report 10584260 (Version 3)
Quarter: 2014Q4

REPORT INFORMATION
  Report Type: Spontaneous
  Country: FR (occurrence: FR)
  Receive Date: 20141114
  Receipt Date: 20141201
  Transmission Date: 20150529
  Serious: Yes (Death, Hospitalization, Other)
  Sender: FDA-Public Use
  Company Number: FR-BAXTER-2014BAX062891

PATIENT
  Age: 31 Year
  Sex: Female

DRUGS (7)
  1. EVOLTRA [Suspect]
     Active Substance: CLOFARABINE
     Indication: BONE MARROW CONDITIONING REGIMEN
     Dosage: FROM DAY -13 TO DAY -9
     Route: 042
     Dates: start: 20140827, end: 20140831
  2. ZOVIRAX [Concomitant]
     Active Substance: ACYCLOVIR
     Indication: PRODUCT USED FOR UNKNOWN INDICATION
     Route: 065
  3. SANDIMMUNE [Concomitant]
     Active Substance: CYCLOSPORINE
     Indication: PROPHYLAXIS AGAINST TRANSPLANT REJECTION
     Route: 065
     Dates: start: 20140909
  4. BUSILVEX [Suspect]
     Active Substance: BUSULFAN
     Indication: BONE MARROW CONDITIONING REGIMEN
     Dosage: FROM DAY -4 TO DAY -3
     Route: 042
     Dates: start: 20140905, end: 20140906
  5. ARACYTINE [Suspect]
     Active Substance: CYTARABINE
     Indication: BONE MARROW CONDITIONING REGIMEN
     Dosage: FROM DAY -14 TO DAY -9
     Route: 042
     Dates: start: 20140827, end: 20140831
  6. ENDOXAN 1000 MG, POUDRE POUR SOLUTION INJECTABLE [Suspect]
     Active Substance: CYCLOPHOSPHAMIDE
     Indication: BONE MARROW CONDITIONING REGIMEN
     Dosage: ONCE ON DAY -5
     Route: 042
     Dates: start: 20140904, end: 20140904
  7. THYMOGLOBULINE [Suspect]
     Active Substance: LAPINE T-LYMPHOCYTE IMMUNE GLOBULIN
     Indication: BONE MARROW CONDITIONING REGIMEN
     Dosage: FROM DAY -3 TO DAY -2
     Route: 065
     Dates: start: 20140906, end: 20140907

REACTIONS (5)
  - Hyperbilirubinaemia [Not Recovered/Not Resolved]
  - Klebsiella sepsis [Fatal]
  - Hepatic enzyme increased [Not Recovered/Not Resolved]
  - Swelling face [Unknown]
  - Rash [Unknown]

NARRATIVE: CASE EVENT DATE: 20140910
